FAERS Safety Report 7008785-5 (Version None)
Quarter: 2010Q3

REPORT INFORMATION
  Report Type: 
  Country: None (occurrence: None)
  Receive Date: 20100921
  Receipt Date: 20100903
  Transmission Date: 20110219
  Serious: Yes (Hospitalization)
  Sender: FDA-Public Use
  Company Number: UK-ACCORD-003084

PATIENT
  Age: 46 Year
  Sex: Female

DRUGS (1)
  1. MITOMYCIN [Suspect]
     Indication: PTERYGIUM OPERATION
     Dosage: TOPICAL
     Route: 061

REACTIONS (7)
  - ANTERIOR CHAMBER INFLAMMATION [None]
  - ENDOPHTHALMITIS [None]
  - EYE INFECTION STAPHYLOCOCCAL [None]
  - HYPOPYON [None]
  - KERATITIS FUNGAL [None]
  - OFF LABEL USE [None]
  - VITRITIS [None]
